FAERS Safety Report 9268495 (Version 2)
Quarter: 2013Q4

REPORT INFORMATION
  Report Type: Spontaneous
  Country: GB (occurrence: GB)
  Receive Date: 20130502
  Receipt Date: 20131016
  Transmission Date: 20140711
  Serious: Yes (Other)
  Sender: FDA-Public Use
  Company Number: GB-B.I. PHARMACEUTICALS,INC./RIDGEFIELD-2013-UK-00934UK

PATIENT
  Age: 76 Year
  Sex: Male
  Weight: 67 kg

DRUGS (8)
  1. MOBIC [Suspect]
     Indication: RHEUMATOID ARTHRITIS
     Dates: start: 20130314, end: 20130407
  2. CO-CODAMOL [Concomitant]
     Dates: start: 20121217
  3. FOLIC ACID [Concomitant]
     Dates: start: 20121220
  4. FUROSEMIDE [Concomitant]
     Dates: start: 20121220
  5. HYDROCORTISONE [Concomitant]
     Dates: start: 20130308, end: 20130322
  6. METHOTREXATE [Concomitant]
     Dates: start: 20121220
  7. RAMIPRIL [Concomitant]
     Dates: start: 20121203
  8. TRIMETHOPRIM [Concomitant]
     Dates: start: 20130308, end: 20130315

REACTIONS (3)
  - Retinal vein thrombosis [Unknown]
  - Retinal vein occlusion [Not Recovered/Not Resolved]
  - Visual impairment [Unknown]
